FAERS Safety Report 9390440 (Version 2)
Quarter: 2013Q3

REPORT INFORMATION
  Report Type: Spontaneous
  Country: US (occurrence: None)
  Receive Date: 20130624
  Receipt Date: 20130715
  Transmission Date: 20140515
  Serious: Yes (Hospitalization)
  Sender: FDA-Public Use
  Company Number: 2013035026

PATIENT
  Age: 46 Year
  Sex: Male
  Weight: 74.84 kg

DRUGS (11)
  1. PRIVIGEN [Suspect]
     Indication: CHRONIC INFLAMMATORY DEMYELINATING POLYRADICULONEUROPATHY
     Dosage: 30 G 5X/MONTH, 10 GM FOR 5 DAYS/MONTH AT 22 ML FOR 16 MIN, 44 ML FOR 15 MIN, AND 89 ML FOR 191 MIN
     Route: 042
     Dates: start: 20130310, end: 20130310
  2. FENTANYL (FENTANYL) [Concomitant]
  3. OXYCODONE (OXYCODONE) [Concomitant]
  4. SUMATRIPTAN (SUMATRIPTAN) [Concomitant]
  5. ATIVAN (LORAZEPAM) [Concomitant]
  6. ZOFRAN (ONDANSETRON) [Concomitant]
  7. HEPARIN (HEPARIN) [Concomitant]
  8. NORMAL SALINE (SODIUM CHLORIDE) [Concomitant]
  9. EPI-PEN (EPINEPHRINE HYDROCHLORIDE [Concomitant]
  10. FELODIPINE (FELODIPINE) [Concomitant]
  11. SODIUM CHLORIDE [Concomitant]

REACTIONS (3)
  - Headache [None]
  - Cyclic vomiting syndrome [None]
  - Off label use [None]
